FAERS Safety Report 12947650 (Version 5)
Quarter: 2023Q2

REPORT INFORMATION
  Report Type: Spontaneous
  Country: CA (occurrence: CA)
  Receive Date: 20161116
  Receipt Date: 20230602
  Transmission Date: 20230722
  Serious: Yes (Hospitalization, Other)
  Sender: FDA-Public Use
  Company Number: CA-PFIZER INC-2016526421

PATIENT
  Age: 54 Year
  Sex: Male
  Weight: 61 kg

DRUGS (2)
  1. PHENYTOIN [Suspect]
     Active Substance: PHENYTOIN
     Indication: Seizure
     Dosage: 100 MG, 3X/DAY
     Route: 065
  2. PHENYTOIN [Suspect]
     Active Substance: PHENYTOIN
     Dosage: UNK (UNKNOWN QUANTITY)
     Route: 048

REACTIONS (7)
  - Overdose [Recovering/Resolving]
  - Coma [Unknown]
  - Toxicity to various agents [Recovering/Resolving]
  - Agitation [Recovered/Resolved]
  - Ataxia [Recovered/Resolved]
  - Confusional state [Recovered/Resolved]
  - Delirium [Recovered/Resolved]
